FAERS Safety Report 5710663-6 (Version None)
Quarter: 2008Q2

REPORT INFORMATION
  Report Type: 
  Country: None (occurrence: None)
  Receive Date: 20080415
  Receipt Date: 20080410
  Transmission Date: 20081010
  Serious: Yes (Life-Threatening, Hospitalization)
  Sender: FDA-Public Use
  Company Number: 2008SP006841

PATIENT
  Age: 53 Year
  Sex: Male
  Weight: 124 kg

DRUGS (7)
  1. VIRAFERONPEG (PEGINTERFERON ALFA-2B) (PEGINTERFERON ALFA-2B) [Suspect]
     Indication: HEPATITIS C
     Dosage: 100 MCG; QW; SC
     Route: 058
     Dates: start: 20070608, end: 20080306
  2. REBETOL [Suspect]
     Indication: HEPATITIS C
     Dosage: 1400 MG; QD; PO
     Route: 048
     Dates: start: 20070608, end: 20080306
  3. PREVISCAN (FLUINDIONE) [Suspect]
     Indication: PHLEBITIS
     Dosage: 25 MG; QD; PO
     Route: 048
     Dates: start: 20071201, end: 20080303
  4. NEUPOGEN [Concomitant]
  5. TEMESTA [Concomitant]
  6. ZOLOFT [Concomitant]
  7. AVLOCARDYL [Concomitant]

REACTIONS (6)
  - ANAEMIA [None]
  - HAEMATOMA [None]
  - HEPATIC CIRRHOSIS [None]
  - OVERDOSE [None]
  - STAPHYLOCOCCAL SEPSIS [None]
  - THROMBOCYTOPENIA [None]
